FAERS Safety Report 8485409-1 (Version None)
Quarter: 2012Q3

REPORT INFORMATION
  Report Type: 
  Country: None (occurrence: None)
  Receive Date: 20120703
  Receipt Date: 20120627
  Transmission Date: 20120928
  Serious: Yes (Other)
  Sender: FDA-Public Use
  Company Number: PHHY2012MX055961

PATIENT
  Sex: Female

DRUGS (2)
  1. TRILEPTAL [Suspect]
     Dosage: 6 ML, UNK
     Route: 048
     Dates: start: 20120607
  2. TRILEPTAL [Suspect]
     Indication: EPILEPSY
     Dosage: 7.5 ML, DAILY
     Dates: start: 20110301

REACTIONS (1)
  - NEOPLASM [None]
